FAERS Safety Report 14362607 (Version 1)
Quarter: 2018Q1

REPORT INFORMATION
  Report Type: Spontaneous
  Country: TR (occurrence: TR)
  Receive Date: 20180108
  Receipt Date: 20180108
  Transmission Date: 20180509
  Serious: Yes (Hospitalization, Other)
  Sender: FDA-Public Use
  Company Number: TR-MYLANLABS-2017M1082989

PATIENT
  Age: 48 Year
  Sex: Male

DRUGS (2)
  1. VENLAFAXINE [Suspect]
     Active Substance: VENLAFAXINE HYDROCHLORIDE
     Indication: MAJOR DEPRESSION
     Dosage: INCREASED TO 75MG TWICE DAILY
     Route: 065
  2. VENLAFAXINE [Suspect]
     Active Substance: VENLAFAXINE HYDROCHLORIDE
     Route: 065

REACTIONS (2)
  - Lower urinary tract symptoms [Recovered/Resolved]
  - Urinary retention [Recovered/Resolved]
